FAERS Safety Report 7694354-0 (Version None)
Quarter: 2011Q3

REPORT INFORMATION
  Report Type: 
  Country: None (occurrence: None)
  Receive Date: 20110819
  Receipt Date: 20110817
  Transmission Date: 20111222
  Serious: Yes (Death, Other)
  Sender: FDA-Public Use
  Company Number: NZ-B.I. PHARMACEUTICALS,INC./RIDGEFIELD-2011-AU-00481AU

PATIENT

DRUGS (1)
  1. PRADAXA [Suspect]

REACTIONS (2)
  - HAEMORRHAGE [None]
  - DEATH [None]
